FAERS Safety Report 25171541 (Version 2)
Quarter: 2025Q2

REPORT INFORMATION
  Report Type: Spontaneous
  Country: ES (occurrence: ES)
  Receive Date: 20250408
  Receipt Date: 20250417
  Transmission Date: 20250717
  Serious: Yes (Hospitalization, Disabling)
  Sender: TERSERA THERAPEUTICS
  Company Number: ES-ESTEVE- 2025-00535

PATIENT

DRUGS (48)
  1. PRIALT [Suspect]
     Active Substance: ZICONOTIDE ACETATE
     Indication: Product used for unknown indication
     Route: 037
     Dates: start: 20230419, end: 20250313
  2. PRIALT [Suspect]
     Active Substance: ZICONOTIDE ACETATE
     Route: 037
     Dates: start: 20230503
  3. PRIALT [Suspect]
     Active Substance: ZICONOTIDE ACETATE
     Route: 037
     Dates: start: 20230531
  4. PRIALT [Suspect]
     Active Substance: ZICONOTIDE ACETATE
     Route: 037
     Dates: start: 20230628
  5. PRIALT [Suspect]
     Active Substance: ZICONOTIDE ACETATE
     Route: 037
     Dates: start: 20230906
  6. PRIALT [Suspect]
     Active Substance: ZICONOTIDE ACETATE
     Route: 037
     Dates: start: 20231213
  7. PRIALT [Suspect]
     Active Substance: ZICONOTIDE ACETATE
     Route: 037
     Dates: start: 20240131
  8. PRIALT [Suspect]
     Active Substance: ZICONOTIDE ACETATE
     Route: 037
     Dates: start: 20240405
  9. PRIALT [Suspect]
     Active Substance: ZICONOTIDE ACETATE
     Route: 037
     Dates: start: 20240606
  10. PRIALT [Suspect]
     Active Substance: ZICONOTIDE ACETATE
     Route: 037
     Dates: start: 20240808
  11. PRIALT [Suspect]
     Active Substance: ZICONOTIDE ACETATE
     Route: 037
     Dates: start: 20241017
  12. PRIALT [Suspect]
     Active Substance: ZICONOTIDE ACETATE
     Route: 037
     Dates: start: 20241121
  13. PRIALT [Suspect]
     Active Substance: ZICONOTIDE ACETATE
     Route: 037
     Dates: start: 20241219
  14. PRIALT [Suspect]
     Active Substance: ZICONOTIDE ACETATE
     Route: 037
     Dates: start: 20250109
  15. PRIALT [Suspect]
     Active Substance: ZICONOTIDE ACETATE
     Route: 037
     Dates: start: 20250123
  16. PRIALT [Suspect]
     Active Substance: ZICONOTIDE ACETATE
     Route: 037
     Dates: start: 20250213, end: 20250217
  17. MORPHINE HYDROCHLORIDE [Concomitant]
     Active Substance: MORPHINE HYDROCHLORIDE
     Indication: Product used for unknown indication
     Route: 037
     Dates: start: 2017
  18. MORPHINE HYDROCHLORIDE [Concomitant]
     Active Substance: MORPHINE HYDROCHLORIDE
     Route: 037
     Dates: start: 20230628
  19. MORPHINE HYDROCHLORIDE [Concomitant]
     Active Substance: MORPHINE HYDROCHLORIDE
     Route: 037
     Dates: start: 20230728
  20. MORPHINE HYDROCHLORIDE [Concomitant]
     Active Substance: MORPHINE HYDROCHLORIDE
     Route: 037
     Dates: start: 20230906
  21. MORPHINE HYDROCHLORIDE [Concomitant]
     Active Substance: MORPHINE HYDROCHLORIDE
     Route: 037
     Dates: start: 20231025
  22. MORPHINE HYDROCHLORIDE [Concomitant]
     Active Substance: MORPHINE HYDROCHLORIDE
     Route: 037
     Dates: start: 20231213
  23. MORPHINE HYDROCHLORIDE [Concomitant]
     Active Substance: MORPHINE HYDROCHLORIDE
     Route: 037
     Dates: start: 20240131
  24. MORPHINE HYDROCHLORIDE [Concomitant]
     Active Substance: MORPHINE HYDROCHLORIDE
     Route: 037
     Dates: start: 20240212
  25. MORPHINE HYDROCHLORIDE [Concomitant]
     Active Substance: MORPHINE HYDROCHLORIDE
     Route: 037
     Dates: start: 20240405
  26. MORPHINE HYDROCHLORIDE [Concomitant]
     Active Substance: MORPHINE HYDROCHLORIDE
     Route: 037
     Dates: start: 20240419
  27. MORPHINE HYDROCHLORIDE [Concomitant]
     Active Substance: MORPHINE HYDROCHLORIDE
     Route: 037
     Dates: start: 20240606
  28. MORPHINE HYDROCHLORIDE [Concomitant]
     Active Substance: MORPHINE HYDROCHLORIDE
     Route: 037
     Dates: start: 20250123
  29. MORPHINE HYDROCHLORIDE [Concomitant]
     Active Substance: MORPHINE HYDROCHLORIDE
     Route: 037
     Dates: start: 20250214
  30. MORPHINE HYDROCHLORIDE [Concomitant]
     Active Substance: MORPHINE HYDROCHLORIDE
     Route: 037
     Dates: start: 20250217
  31. BUPIVACAINE [Concomitant]
     Active Substance: BUPIVACAINE
     Indication: Product used for unknown indication
     Route: 037
     Dates: start: 20240419
  32. BUPIVACAINE [Concomitant]
     Active Substance: BUPIVACAINE
     Route: 037
     Dates: start: 20240606
  33. BUPIVACAINE [Concomitant]
     Active Substance: BUPIVACAINE
     Route: 037
     Dates: start: 20240808
  34. BUPIVACAINE [Concomitant]
     Active Substance: BUPIVACAINE
     Route: 037
     Dates: start: 20241121
  35. BUPIVACAINE [Concomitant]
     Active Substance: BUPIVACAINE
     Route: 037
     Dates: start: 20241219
  36. BUPIVACAINE [Concomitant]
     Active Substance: BUPIVACAINE
     Route: 037
     Dates: start: 20250109
  37. BUPIVACAINE [Concomitant]
     Active Substance: BUPIVACAINE
     Dates: start: 20250213
  38. BUPIVACAINE [Concomitant]
     Active Substance: BUPIVACAINE
     Route: 037
     Dates: start: 20250214
  39. METFORMIN HYDROCHLORIDE [Concomitant]
     Active Substance: METFORMIN HYDROCHLORIDE
     Indication: Product used for unknown indication
     Route: 065
  40. JARDIANCE [Concomitant]
     Active Substance: EMPAGLIFLOZIN
     Indication: Product used for unknown indication
     Route: 065
  41. CALCIFEDIOL [Concomitant]
     Active Substance: CALCIFEDIOL
     Indication: Product used for unknown indication
     Route: 065
  42. SIMVASTATIN [Concomitant]
     Active Substance: SIMVASTATIN
     Indication: Product used for unknown indication
     Route: 065
  43. ACETAMINOPHEN [Concomitant]
     Active Substance: ACETAMINOPHEN
     Indication: Product used for unknown indication
     Route: 065
  44. GABAPENTIN [Concomitant]
     Active Substance: GABAPENTIN
     Indication: Product used for unknown indication
     Route: 065
  45. DIAZEPAM [Concomitant]
     Active Substance: DIAZEPAM
     Indication: Product used for unknown indication
     Route: 065
  46. DULOXETINE [Concomitant]
     Active Substance: DULOXETINE
     Indication: Product used for unknown indication
     Route: 065
  47. IBUPROFEN [Concomitant]
     Active Substance: IBUPROFEN
     Indication: Product used for unknown indication
     Route: 065
  48. BOTULINUM TOXIN NOS [Concomitant]
     Active Substance: BOTULINUM TOXIN NOS
     Indication: Product used for unknown indication
     Route: 030
     Dates: start: 20240506

REACTIONS (10)
  - Parosmia [Recovering/Resolving]
  - Dysphemia [Not Recovered/Not Resolved]
  - Dysgeusia [Recovering/Resolving]
  - Tremor [Not Recovered/Not Resolved]
  - Inadequate analgesia [Recovering/Resolving]
  - Insomnia [Not Recovered/Not Resolved]
  - Somnolence [Not Recovered/Not Resolved]
  - Memory impairment [Unknown]
  - Nausea [Unknown]
  - Anxiety [Unknown]

NARRATIVE: CASE EVENT DATE: 20230503
